FAERS Safety Report 15487644 (Version 1)
Quarter: 2018Q4

REPORT INFORMATION
  Report Type: Report from Study
  Country: US (occurrence: None)
  Receive Date: 20181011
  Receipt Date: 20181011
  Transmission Date: 20190205
  Serious: Yes (Death, Hospitalization)
  Sender: FDA-Public Use
  Company Number: 2018ADA01705

PATIENT
  Age: 70 Year
  Sex: Male
  Weight: 84.8 kg

DRUGS (17)
  1. GABAPENTIN. [Concomitant]
     Active Substance: GABAPENTIN
  2. COMTAN [Concomitant]
     Active Substance: ENTACAPONE
  3. LEXAPRO [Concomitant]
     Active Substance: ESCITALOPRAM OXALATE
  4. SINEMET (CARBIDOPA; LEVODOPA) [Concomitant]
  5. GOCOVRI [Suspect]
     Active Substance: AMANTADINE
     Indication: DYSKINESIA
     Route: 048
     Dates: start: 20180630, end: 20180706
  6. LEVOTHYROXINE. [Concomitant]
     Active Substance: LEVOTHYROXINE
  7. RYTARY (CARBIDOPA; LEVODOPA) [Concomitant]
  8. ASPIRIN (ACETYLSALICYLIC ACID) [Concomitant]
     Active Substance: ASPIRIN
  9. GLUCOSAMINE CHONDROITIN (DIETARY SUPPLEMENT) [Concomitant]
  10. WELLBUTRIN SR (BUPROPION HYDROCHLORIDE) [Concomitant]
  11. RITALIN [Concomitant]
     Active Substance: METHYLPHENIDATE HYDROCHLORIDE
  12. ACETAMINOPHEN. [Concomitant]
     Active Substance: ACETAMINOPHEN
  13. AMANTADINE HYDROCHLORIDE. [Concomitant]
     Active Substance: AMANTADINE HYDROCHLORIDE
  14. EXELON [Suspect]
     Active Substance: RIVASTIGMINE TARTRATE
     Route: 062
     Dates: end: 20180831
  15. LORAZEPAM. [Concomitant]
     Active Substance: LORAZEPAM
  16. VITAMIN D3 (DIETARY SUPPLEMENT) [Concomitant]
  17. IBUPROFEN. [Concomitant]
     Active Substance: IBUPROFEN

REACTIONS (10)
  - Cardiac arrest [None]
  - Psychotic disorder [None]
  - Dementia [None]
  - Disorientation [None]
  - Mental status changes [None]
  - Hallucination, auditory [None]
  - Aggression [None]
  - Confusional state [None]
  - Neuropsychiatric symptoms [None]
  - Agitation [None]

NARRATIVE: CASE EVENT DATE: 2018
